FAERS Safety Report 13573026 (Version 1)
Quarter: 2017Q2

REPORT INFORMATION
  Report Type: Report from Study
  Country: US (occurrence: US)
  Receive Date: 20170523
  Receipt Date: 20170523
  Transmission Date: 20170830
  Serious: Yes (Hospitalization)
  Sender: FDA-Public Use
  Company Number: US-ASTRAZENECA-2016SE20301

PATIENT
  Age: 25470 Day
  Sex: Male
  Weight: 56.7 kg

DRUGS (16)
  1. GLYCOPYRRONIUM + FORMOTEROL FUMARATE INHALATION AEROSOL (PEARL) [Suspect]
     Active Substance: GLYCOPYRRONIUM\FORMOTEROL FUMARATE
     Indication: CHRONIC OBSTRUCTIVE PULMONARY DISEASE
     Dosage: 14.4/9.6 UG EX-ACTUATOR BID
     Route: 055
     Dates: start: 20160107, end: 20160221
  2. SEREVENT DISKUS [Concomitant]
     Active Substance: SALMETEROL XINAFOATE
     Indication: CHRONIC OBSTRUCTIVE PULMONARY DISEASE
     Route: 055
     Dates: start: 20141215, end: 20151228
  3. RANITIDINE. [Concomitant]
     Active Substance: RANITIDINE
     Indication: GASTROOESOPHAGEAL REFLUX DISEASE
     Route: 048
     Dates: start: 2012, end: 20160221
  4. MULTIVITAMIN [Concomitant]
     Active Substance: VITAMINS
     Indication: PROPHYLAXIS
     Route: 048
     Dates: start: 1997
  5. VENTOLIN HFA [Concomitant]
     Active Substance: ALBUTEROL SULFATE
     Indication: CHRONIC OBSTRUCTIVE PULMONARY DISEASE
     Dosage: 90 MICORGRAMS AS REQUIRED ,
     Route: 055
     Dates: start: 20151217, end: 20160221
  6. LEVETIRACETAM. [Concomitant]
     Active Substance: LEVETIRACETAM
     Indication: SEIZURE
     Route: 048
     Dates: start: 2013
  7. TAMSULOSIN [Concomitant]
     Active Substance: TAMSULOSIN
     Indication: URINARY RETENTION
     Route: 048
     Dates: start: 2010
  8. SPIRIVA [Concomitant]
     Active Substance: TIOTROPIUM BROMIDE MONOHYDRATE
     Indication: CHRONIC OBSTRUCTIVE PULMONARY DISEASE
     Route: 055
     Dates: start: 20151105, end: 20151217
  9. LEVOFLOXACIN. [Concomitant]
     Active Substance: LEVOFLOXACIN
     Indication: CHRONIC OBSTRUCTIVE PULMONARY DISEASE
     Route: 048
     Dates: start: 20160224, end: 20160310
  10. LEVOFLOXACIN. [Concomitant]
     Active Substance: LEVOFLOXACIN
     Indication: CHRONIC OBSTRUCTIVE PULMONARY DISEASE
     Route: 042
     Dates: start: 20160221, end: 20160221
  11. SPIRIVA [Concomitant]
     Active Substance: TIOTROPIUM BROMIDE MONOHYDRATE
     Indication: CHRONIC OBSTRUCTIVE PULMONARY DISEASE
     Route: 055
     Dates: start: 20160225
  12. ACETAMINOPHEN. [Concomitant]
     Active Substance: ACETAMINOPHEN
     Indication: PAIN IN EXTREMITY
     Dosage: 500.0MG AS REQUIRED
     Route: 048
     Dates: start: 2016
  13. AZITHROMYCIN ANHYDROUS. [Concomitant]
     Active Substance: AZITHROMYCIN ANHYDROUS
     Indication: CHRONIC OBSTRUCTIVE PULMONARY DISEASE
     Dosage: 500.0MG UNKNOWN
     Route: 042
     Dates: start: 20160221, end: 20160222
  14. METHYLPREDNISOLONE. [Concomitant]
     Active Substance: METHYLPREDNISOLONE
     Indication: CHRONIC OBSTRUCTIVE PULMONARY DISEASE
     Dosage: 125.0MG ONCE/SINGLE ADMINISTRATION
     Route: 042
     Dates: start: 20160221, end: 20160221
  15. METHYLPREDNISOLONE. [Concomitant]
     Active Substance: METHYLPREDNISOLONE
     Indication: CHRONIC OBSTRUCTIVE PULMONARY DISEASE
     Dosage: 40.0MG ONCE/SINGLE ADMINISTRATION
     Route: 042
     Dates: start: 20160221, end: 20160221
  16. PANTOPRAZOLE [Concomitant]
     Active Substance: PANTOPRAZOLE
     Indication: GASTROOESOPHAGEAL REFLUX DISEASE
     Route: 048
     Dates: start: 20160222

REACTIONS (3)
  - Cardiac failure congestive [Recovered/Resolved]
  - Acute myocardial infarction [Recovered/Resolved]
  - Chronic obstructive pulmonary disease [Recovered/Resolved]

NARRATIVE: CASE EVENT DATE: 20160221
